FAERS Safety Report 9823686 (Version 2)
Quarter: 2014Q1

REPORT INFORMATION
  Report Type: Spontaneous
  Country: US (occurrence: US)
  Receive Date: 20140116
  Receipt Date: 20140116
  Transmission Date: 20141002
  Serious: No
  Sender: FDA-Public Use
  Company Number: US-GILEAD-2011-0037537

PATIENT
  Sex: Female

DRUGS (4)
  1. LETAIRIS [Suspect]
     Indication: PULMONARY HYPERTENSION
     Route: 048
     Dates: start: 20110309, end: 20110328
  2. LETAIRIS [Suspect]
     Indication: RHEUMATOID LUNG
  3. LETAIRIS [Suspect]
     Indication: INTERSTITIAL LUNG DISEASE
  4. REVATIO [Concomitant]

REACTIONS (4)
  - Chest discomfort [Unknown]
  - Swelling [Unknown]
  - Local swelling [Unknown]
  - Dyspnoea [Unknown]
